FAERS Safety Report 9240754 (Version 1)
Quarter: 2013Q2

REPORT INFORMATION
  Report Type: Spontaneous
  Country: US (occurrence: None)
  Receive Date: 20130418
  Receipt Date: 20130418
  Transmission Date: 20140414
  Serious: Yes (Other)
  Sender: FDA-Public Use
  Company Number: None

PATIENT
  Age: 49 Year
  Sex: Female

DRUGS (1)
  1. STIVARGA [Suspect]
     Indication: COLON CANCER STAGE IV
     Route: 048
     Dates: start: 20130409, end: 20130416

REACTIONS (5)
  - Limb discomfort [None]
  - Pain [None]
  - Movement disorder [None]
  - Hepatic enzyme increased [None]
  - Metastases to liver [None]
